FAERS Safety Report 10662351 (Version 3)
Quarter: 2015Q1

REPORT INFORMATION
  Report Type: Spontaneous
  Country: TR (occurrence: TR)
  Receive Date: 20141218
  Receipt Date: 20150114
  Transmission Date: 20150720
  Serious: Yes (Death, Hospitalization)
  Sender: FDA-Public Use
  Company Number: TR-BIOMARINAP-TR-2014-104996

PATIENT
  Age: 9 Year
  Sex: Male
  Weight: 25 kg

DRUGS (1)
  1. NAGLAZYME [Suspect]
     Active Substance: GALSULFASE
     Indication: MUCOPOLYSACCHARIDOSIS VI
     Dosage: 1 MG/KG, QW
     Route: 042
     Dates: start: 20140901

REACTIONS (2)
  - Respiratory distress [Not Recovered/Not Resolved]
  - Aspiration [Fatal]

NARRATIVE: CASE EVENT DATE: 20141108
